FAERS Safety Report 4879866-7 (Version None)
Quarter: 2006Q1

REPORT INFORMATION
  Report Type: 
  Country: None (occurrence: None)
  Receive Date: 20060113
  Receipt Date: 20050406
  Transmission Date: 20060701
  Serious: Yes (Hospitalization)
  Sender: FDA-Public Use
  Company Number: US-MERCK-0504USA01107

PATIENT
  Age: 58 Year
  Sex: Male
  Weight: 73 kg

DRUGS (2)
  1. VIOXX [Suspect]
     Indication: MUSCLE INJURY
     Route: 048
     Dates: start: 20030328, end: 20030404
  2. VIOXX [Suspect]
     Indication: INFLAMMATION
     Route: 048
     Dates: start: 20030328, end: 20030404

REACTIONS (5)
  - ANXIETY [None]
  - CORONARY ARTERY RESTENOSIS [None]
  - CORONARY ARTERY THROMBOSIS [None]
  - MYOCARDIAL INFARCTION [None]
  - THROMBOSIS [None]
